FAERS Safety Report 24704839 (Version 1)
Quarter: 2024Q4

REPORT INFORMATION
  Report Type: Spontaneous
  Country: NL (occurrence: NL)
  Receive Date: 20241206
  Receipt Date: 20241206
  Transmission Date: 20250114
  Serious: Yes (Hospitalization)
  Sender: TEVA
  Company Number: None

PATIENT
  Age: 78 Year
  Sex: Female
  Weight: 73.1 kg

DRUGS (3)
  1. PANTOPRAZOLE [Suspect]
     Active Substance: PANTOPRAZOLE
     Indication: Product used for unknown indication
     Dosage: 1 PIECE ONCE A DAY; TABLET MSR / BRAND NAME NOT SPECIFIED
     Route: 048
     Dates: start: 20170501, end: 20241024
  2. HYDROCHLOROTHIAZIDE [Suspect]
     Active Substance: HYDROCHLOROTHIAZIDE
     Indication: Hypertension
     Dosage: 1 PIECE TWICE A DAY; BRAND NAME NOT SPECIFIED
     Route: 048
     Dates: start: 20170503, end: 20241024
  3. MAGNESIUM GLUCONATE [Concomitant]
     Active Substance: MAGNESIUM GLUCONATE
     Indication: Product used for unknown indication
     Dosage: 500MG (1.2MMOL MAG) / BRAND NAME NOT SPECIFIED
     Route: 048

REACTIONS (1)
  - Hypomagnesaemia [Recovering/Resolving]
